FAERS Safety Report 5166495-3 (Version None)
Quarter: 2006Q4

REPORT INFORMATION
  Report Type: 
  Country: None (occurrence: None)
  Receive Date: 20061207
  Receipt Date: 20061110
  Transmission Date: 20070319
  Serious: Yes (Hospitalization)
  Sender: FDA-Public Use
  Company Number: US-SOLVAY-00206003660

PATIENT
  Age: 18176 Day
  Sex: Male

DRUGS (18)
  1. ANDROGEL [Suspect]
     Indication: SECONDARY HYPOGONADISM
     Dosage: DAILY DOSE: 5 GRAM(S)
     Route: 062
     Dates: start: 20061012
  2. LIPITOR [Concomitant]
     Indication: HYPERCHOLESTEROLAEMIA
     Dosage: DAILY DOSE: 1 DOSAGE FORM
     Route: 048
  3. QUINAPRIL AND HYDROCHLOROTHIAZIDE [Concomitant]
     Indication: BLOOD PRESSURE
     Dosage: DAILY DOSE: 2 DOSAGE FORM
     Route: 048
  4. DIGOXIN [Concomitant]
     Indication: HEART RATE IRREGULAR
     Dosage: DAILY DOSE: 5 MILLILITRE(S)
     Route: 058
  5. HYDROCHLOROTHIAZIDE [Concomitant]
     Indication: HYPERTENSION
     Dosage: DAILY DOSE: 25 MILLIGRAM(S)
     Route: 048
  6. HYDRALAZINE HCL [Concomitant]
     Indication: HYPERTENSION
     Dosage: DAILY DOSE: 3 DOSAGE FORM
     Route: 048
  7. FOLIC ACID [Concomitant]
     Indication: RED BLOOD CELL ABNORMALITY
     Dosage: DAILY DOSE: 1 MILLIGRAM(S)
     Route: 048
  8. COREG IN FIXED OIL [Concomitant]
     Indication: BLOOD PRESSURE
     Dosage: DAILY DOSE: 50 MILLIGRAM(S)
     Route: 048
  9. ACTOS [Concomitant]
     Indication: DIABETES MELLITUS
     Dosage: DAILY DOSE: 30 MILLIGRAM(S)
     Route: 048
  10. ASPIRIN [Concomitant]
     Indication: HEART RATE IRREGULAR
     Dosage: DAILY DOSE: 325 MILLIGRAM(S)
     Route: 048
  11. ADVAIR DISKUS 100/50 [Concomitant]
     Indication: DYSPNOEA
     Dosage: DAILY DOSE: 2 DOSAGE FORM
     Route: 055
  12. NORVASC [Concomitant]
     Indication: BLOOD PRESSURE
     Dosage: DAILY DOSE: 10 MILLIGRAM(S)
     Route: 048
  13. LANTUS U-100 INSULIN [Concomitant]
     Indication: DIABETES MELLITUS
     Dosage: DAILY DOSE: 100 INTERNATIONAL UNIT(S)
     Route: 058
  14. NOVOLOG [Concomitant]
     Indication: DIABETES MELLITUS
     Dosage: DAILY DOSE: 150 UNKNOWN
     Route: 058
  15. BYETTA [Concomitant]
     Indication: DIABETES MELLITUS
     Dosage: DAILY DOSE: 5 MCG BEFORE BREAKFAST AND 5 MCG BEFORE DINNER
     Route: 058
  16. DUONEB [Concomitant]
     Indication: DYSPNOEA
     Dosage: DAILY DOSE:  PRN EVERY 6 HOURS
     Route: 055
  17. LOTREL [Concomitant]
     Indication: ILL-DEFINED DISORDER
     Dosage: DAILY DOSE: 10/40 MG DAILY
     Route: 048
  18. NITROTAB [Concomitant]
     Indication: CHEST PAIN
     Dosage: DAILY DOSE:  0.4 MG PRN
     Route: 060

REACTIONS (3)
  - CHEST PAIN [None]
  - DIABETES MELLITUS [None]
  - HEPATIC FUNCTION ABNORMAL [None]
